FAERS Safety Report 8149002-2 (Version None)
Quarter: 2012Q1

REPORT INFORMATION
  Report Type: 
  Country: None (occurrence: None)
  Receive Date: 20120218
  Receipt Date: 20110818
  Transmission Date: 20120608
  Serious: No
  Sender: FDA-Public Use
  Company Number: US-ALLERGAN-1111038US

PATIENT
  Age: 54 Year
  Sex: Female
  Weight: 45.351 kg

DRUGS (2)
  1. BOTULINUM TOXIN TYPE A [Suspect]
     Indication: PRODUCT USED FOR UNKNOWN INDICATION
     Dosage: 35 UNITS, SINGLE
     Dates: start: 20101206, end: 20101206
  2. JUVEDERM [Suspect]
     Indication: PRODUCT USED FOR UNKNOWN INDICATION
     Dosage: UNK
     Dates: start: 20101206

REACTIONS (4)
  - HEADACHE [None]
  - CONTUSION [None]
  - LIP SWELLING [None]
  - INFLUENZA LIKE ILLNESS [None]
